FAERS Safety Report 12355200 (Version 1)
Quarter: 2016Q2

REPORT INFORMATION
  Report Type: Spontaneous
  Country: US (occurrence: US)
  Receive Date: 20160511
  Receipt Date: 20160511
  Transmission Date: 20160815
  Serious: Yes (Other)
  Sender: FDA-Public Use
  Company Number: ADR-2015-01339

PATIENT
  Age: 73 Year
  Sex: Female

DRUGS (1)
  1. BACLOFEN. [Suspect]
     Active Substance: BACLOFEN
     Route: 037

REACTIONS (4)
  - Hypersomnia [Unknown]
  - Somnolence [Unknown]
  - Depressed level of consciousness [Unknown]
  - Muscle spasticity [Unknown]

NARRATIVE: CASE EVENT DATE: 20150708
